FAERS Safety Report 4975966-1 (Version None)
Quarter: 2006Q3

REPORT INFORMATION
  Report Type: 
  Country: None (occurrence: None)
  Receive Date: 20060412
  Receipt Date: 20060331
  Transmission Date: 20061208
  Serious: Yes (Hospitalization)
  Sender: FDA-Public Use
  Company Number: 2006RR-01906

PATIENT
  Age: 91 Year
  Sex: Female

DRUGS (5)
  1. FLUCLOXACILLIN [Suspect]
     Indication: CELLULITIS
     Dosage: 500 MG, QID, ORAL
     Route: 048
     Dates: start: 20060309, end: 20060313
  2. AMOXICILLIN + CLAVULANATE POTASSIUM [Suspect]
     Indication: CELLULITIS
     Dosage: 375 MG, TID, ORAL
     Route: 048
     Dates: start: 20060305, end: 20060313
  3. DIGOXIN [Concomitant]
  4. BENDROFLUAZIDE (BENDROFLUMETHIAZIDE) [Concomitant]
  5. WARFARIN SODIUM [Concomitant]

REACTIONS (1)
  - JAUNDICE CHOLESTATIC [None]
